FAERS Safety Report 4658794-6 (Version None)
Quarter: 2005Q2

REPORT INFORMATION
  Report Type: 
  Country: None (occurrence: None)
  Receive Date: 20050510
  Receipt Date: 20050510
  Transmission Date: 20051028
  Serious: Yes (Hospitalization, Other)
  Sender: FDA-Public Use
  Company Number: None

PATIENT
  Sex: Male
  Weight: 74 kg

DRUGS (3)
  1. TAXOL [Suspect]
     Dosage: 50 MG/M2 IV OVER 60 MINS DAYS 1,8,15
     Route: 042
     Dates: start: 20050127
  2. CARBOPLATIN [Suspect]
     Dosage: AUC 2 IV OVER 30 MIN DAYS 1,8,15 TIMES 4 CYCLES
     Route: 042
  3. IRESSA [Suspect]
     Dosage: 250 MG PO DAYS 1-28
     Route: 048

REACTIONS (8)
  - ASTHENIA [None]
  - ATRIAL FIBRILLATION [None]
  - COUGH [None]
  - DYSPNOEA [None]
  - NEUTROPHIL COUNT ABNORMAL [None]
  - PLATELET COUNT DECREASED [None]
  - PYREXIA [None]
  - RESPIRATORY FAILURE [None]
